FAERS Safety Report 5074758-5 (Version None)
Quarter: 2006Q3

REPORT INFORMATION
  Report Type: 
  Country: None (occurrence: None)
  Receive Date: 20060807
  Receipt Date: 20060728
  Transmission Date: 20061208
  Serious: Yes (Other)
  Sender: FDA-Public Use
  Company Number: 2006-07-1948

PATIENT
  Sex: Male

DRUGS (2)
  1. REBETOL [Suspect]
     Indication: HEPATITIS C
     Dosage: ORAL
     Route: 048
  2. PEGASYS [Concomitant]

REACTIONS (4)
  - ALCOHOLISM [None]
  - DEPRESSION [None]
  - HEPATIC CIRRHOSIS [None]
  - LIVER TRANSPLANT [None]
